FAERS Safety Report 10460033 (Version 3)
Quarter: 2014Q4

REPORT INFORMATION
  Report Type: Report from Study
  Country: US (occurrence: US)
  Receive Date: 20140917
  Receipt Date: 20141008
  Transmission Date: 20150528
  Serious: Yes (Hospitalization)
  Sender: FDA-Public Use
  Company Number: US-SA-2014SA126539

PATIENT
  Age: 75 Year
  Sex: Male
  Weight: 102 kg

DRUGS (9)
  1. PRAVASTATIN SODIUM. [Concomitant]
     Active Substance: PRAVASTATIN SODIUM
     Indication: BLOOD CHOLESTEROL
     Dates: start: 2000
  2. LANTUS SOLOSTAR [Suspect]
     Active Substance: INSULIN GLARGINE
     Indication: DIABETES MELLITUS
     Dosage: THERAPY START DATE: 10 YEARS AGO; 35 UNITS IN AM AND PM DOSE:15 UNIT(S)
     Route: 065
  3. EFFIENT [Concomitant]
     Active Substance: PRASUGREL HYDROCHLORIDE
     Indication: CARDIAC DISORDER
     Dates: start: 2008
  4. AMLODIPINE BESILATE [Concomitant]
     Active Substance: AMLODIPINE BESYLATE
     Indication: CARDIAC DISORDER
     Dates: start: 2004
  5. ISOSORBIDE MONONITRATE. [Concomitant]
     Active Substance: ISOSORBIDE MONONITRATE
     Indication: RENAL DISORDER
     Dates: start: 2005
  6. SOLOSTAR [Concomitant]
     Active Substance: DEVICE
     Route: 065
     Dates: start: 2004
  7. LANTUS SOLOSTAR [Suspect]
     Active Substance: INSULIN GLARGINE
     Indication: DIABETES MELLITUS
     Dosage: THERAPY START DATE: 10 YEARS AGO; 35 UNITS IN AM AND PM
     Route: 065
     Dates: start: 20040815, end: 20140925
  8. LANTUS SOLOSTAR [Suspect]
     Active Substance: INSULIN GLARGINE
     Indication: DIABETES MELLITUS
     Dosage: THERAPY START DATE: 10 YEARS AGO; 35 UNITS IN AM AND PM
     Route: 065
     Dates: start: 20040815, end: 20140925
  9. SOLOSTAR [Concomitant]
     Active Substance: DEVICE
     Route: 065
     Dates: start: 2004

REACTIONS (6)
  - Off label use [Unknown]
  - Pulmonary oedema [Recovered/Resolved]
  - Intentional product misuse [Unknown]
  - Myocardial infarction [Recovered/Resolved]
  - Renal failure [Recovered/Resolved]
  - Blood glucose increased [Unknown]

NARRATIVE: CASE EVENT DATE: 201407
